FAERS Safety Report 20374274 (Version 1)
Quarter: 2022Q1

REPORT INFORMATION
  Report Type: Spontaneous
  Country: US (occurrence: None)
  Receive Date: 20220124
  Receipt Date: 20220124
  Transmission Date: 20220423
  Serious: Yes (Life-Threatening, Disabling)
  Sender: FDA-Public Use
  Company Number: None

PATIENT
  Age: 56 Year
  Sex: Female
  Weight: 54.45 kg

DRUGS (1)
  1. BUTRANS [Suspect]
     Active Substance: BUPRENORPHINE
     Indication: Pain
     Dosage: OTHER QUANTITY : 4 PATCH(ES);?FREQUENCY : WEEKLY;?
     Route: 062
     Dates: start: 20211031, end: 20220119

REACTIONS (7)
  - Application site swelling [None]
  - Application site pruritus [None]
  - Application site pain [None]
  - Swelling face [None]
  - Swelling [None]
  - Pharyngeal swelling [None]
  - Drug hypersensitivity [None]

NARRATIVE: CASE EVENT DATE: 20220108
